FAERS Safety Report 10444755 (Version 3)
Quarter: 2015Q1

REPORT INFORMATION
  Report Type: Spontaneous
  Country: US (occurrence: US)
  Receive Date: 20140910
  Receipt Date: 20150122
  Transmission Date: 20150720
  Serious: Yes (Death, Hospitalization, Other)
  Sender: FDA-Public Use
  Company Number: US-009507513-1409USA004496

PATIENT
  Sex: Male
  Weight: 111.79 kg

DRUGS (1)
  1. JANUVIA [Suspect]
     Active Substance: SITAGLIPTIN PHOSPHATE
     Indication: TYPE 2 DIABETES MELLITUS
     Dosage: 100 MG, QD
     Route: 048
     Dates: start: 20080710, end: 20100909

REACTIONS (29)
  - Pancreatic carcinoma metastatic [Fatal]
  - Septic shock [Unknown]
  - Bile duct obstruction [Unknown]
  - Nephrolithiasis [Unknown]
  - Aortic aneurysm [Unknown]
  - Coronary arterial stent insertion [Unknown]
  - Adrenal mass [Unknown]
  - Spinal osteoarthritis [Unknown]
  - Hypercholesterolaemia [Unknown]
  - Splenic vein thrombosis [Unknown]
  - Hiatus hernia [Unknown]
  - Pneumonia [Unknown]
  - Epistaxis [Unknown]
  - Haemorrhoids [Unknown]
  - Renal failure [Unknown]
  - Blood uric acid increased [Unknown]
  - Adverse event [Fatal]
  - Metastases to lymph nodes [Unknown]
  - Pulmonary embolism [Unknown]
  - Metastases to liver [Unknown]
  - Pneumonia [Unknown]
  - Renal cyst [Unknown]
  - Prostatic calcification [Unknown]
  - Sepsis [Unknown]
  - Metastases to lung [Unknown]
  - Diverticulum intestinal [Unknown]
  - Skeletal injury [Unknown]
  - Anxiety [Unknown]
  - Depression [Unknown]

NARRATIVE: CASE EVENT DATE: 2008
